FAERS Safety Report 13359597 (Version 6)
Quarter: 2017Q4

REPORT INFORMATION
  Report Type: Spontaneous
  Country: US (occurrence: US)
  Receive Date: 20170322
  Receipt Date: 20171030
  Transmission Date: 20180320
  Serious: No
  Sender: FDA-Public Use
  Company Number: US-PFIZER INC-2017118736

PATIENT
  Age: 80 Year
  Sex: Female
  Weight: 62 kg

DRUGS (1)
  1. PREMARIN [Suspect]
     Active Substance: ESTROGENS, CONJUGATED
     Indication: VAGINAL DISORDER
     Dosage: 0.5 G, 2X/WEEK (1 G, WEEKLY; HALF GRAM TWICE A WEEK, MONDAYS AND THURSDAYS, AT NIGHT TIME)
     Route: 067
     Dates: start: 20170310

REACTIONS (5)
  - Urine analysis abnormal [Unknown]
  - Vaginal haemorrhage [Unknown]
  - Breast mass [Unknown]
  - Wrong technique in product usage process [Unknown]
  - Product quality issue [Unknown]

NARRATIVE: CASE EVENT DATE: 20170524
